FAERS Safety Report 19976776 (Version 1)
Quarter: 2021Q4

REPORT INFORMATION
  Report Type: Report from Study
  Country: US (occurrence: US)
  Receive Date: 20211021
  Receipt Date: 20211021
  Transmission Date: 20220303
  Serious: Yes (Hospitalization)
  Sender: FDA-Public Use
  Company Number: 2021A773830

PATIENT
  Sex: Female

DRUGS (1)
  1. TAGRISSO [Suspect]
     Active Substance: OSIMERTINIB
     Indication: Lung carcinoma cell type unspecified stage 0
     Route: 048
     Dates: start: 20210922

REACTIONS (5)
  - Obstetrical pulmonary embolism [Unknown]
  - Fatigue [Unknown]
  - Nausea [Unknown]
  - Back pain [Unknown]
  - Dyspnoea [Unknown]
